FAERS Safety Report 8256643-0 (Version None)
Quarter: 2012Q2

REPORT INFORMATION
  Report Type: 
  Country: None (occurrence: None)
  Receive Date: 20120403
  Receipt Date: 20120327
  Transmission Date: 20120825
  Serious: Yes (Hospitalization)
  Sender: FDA-Public Use
  Company Number: NG-MERCK-1203USA03682

PATIENT
  Age: 20 Year
  Sex: Female

DRUGS (2)
  1. DECADRON [Suspect]
     Indication: UNDERWEIGHT
     Route: 048
  2. DECADRON [Suspect]
     Route: 048

REACTIONS (1)
  - PSYCHOTIC DISORDER [None]
